FAERS Safety Report 6214901-5 (Version None)
Quarter: 2009Q2

REPORT INFORMATION
  Report Type: 
  Country: None (occurrence: None)
  Receive Date: 20090604
  Receipt Date: 20090130
  Transmission Date: 20091009
  Serious: No
  Sender: FDA-Public Use
  Company Number: US-BAYER-200838618NA

PATIENT
  Age: 55 Year
  Sex: Female
  Weight: 79 kg

DRUGS (9)
  1. ULTRAVIST (PHARMACY BULK) [Suspect]
     Indication: UROGRAM
     Dosage: TOTAL DAILY DOSE: 100 ML  UNIT DOSE: 500 ML
     Route: 042
     Dates: start: 20081111, end: 20081111
  2. STEROID PREP [Concomitant]
     Indication: PREMEDICATION
  3. BENADRYL [Concomitant]
  4. CONTRAST MEDIA [Concomitant]
     Route: 048
  5. TEGRETOL [Concomitant]
  6. NEXIUM [Concomitant]
  7. CALCIUM [Concomitant]
  8. ALLERGY MEDICATIONS [Concomitant]
  9. MULTI-VITAMIN [Concomitant]

REACTIONS (2)
  - PRURITUS [None]
  - URTICARIA [None]
